FAERS Safety Report 9677819 (Version 1)
Quarter: 2013Q4

REPORT INFORMATION
  Report Type: Spontaneous
  Country: AU (occurrence: AU)
  Receive Date: 20131108
  Receipt Date: 20131108
  Transmission Date: 20140711
  Serious: Yes (Other)
  Sender: FDA-Public Use
  Company Number: AU-EISAI INC-E3810-06756-SPO-AU

PATIENT
  Sex: Female

DRUGS (3)
  1. PARIET (RABEPRAZOLE) [Suspect]
     Route: 048
  2. PARIET (RABEPRAZOLE) [Suspect]
     Route: 048
  3. METHOTREXATE [Suspect]
     Indication: LYMPHOMA
     Dosage: UNKNOWN
     Route: 065

REACTIONS (2)
  - Lymphoma [Not Recovered/Not Resolved]
  - Drug interaction [Unknown]
